FAERS Safety Report 4390273-6 (Version None)
Quarter: 2004Q3

REPORT INFORMATION
  Report Type: 
  Country: None (occurrence: None)
  Receive Date: 20040706
  Receipt Date: 20040628
  Transmission Date: 20050211
  Serious: Yes (Life-Threatening)
  Sender: FDA-Public Use
  Company Number: SE-ROCHE-372373

PATIENT
  Age: 59 Year
  Sex: Male

DRUGS (29)
  1. DACLIZUMAB [Suspect]
     Route: 042
     Dates: start: 20040622
  2. DACLIZUMAB [Suspect]
     Route: 042
     Dates: start: 20040629
  3. MYCOPHENOLATE MOFETIL [Suspect]
     Route: 042
     Dates: start: 20040622, end: 20040622
  4. MYCOPHENOLATE MOFETIL [Suspect]
     Route: 042
     Dates: start: 20040623, end: 20040627
  5. MYCOPHENOLATE MOFETIL [Suspect]
     Route: 048
     Dates: start: 20040628
  6. TACROLIMUS [Suspect]
     Route: 048
     Dates: start: 20040627, end: 20040628
  7. TACROLIMUS [Suspect]
     Route: 048
     Dates: start: 20040629, end: 20040629
  8. TACROLIMUS [Suspect]
     Route: 048
     Dates: start: 20040630
  9. METHYLPREDNISOLONE [Suspect]
     Route: 065
     Dates: start: 20040622, end: 20040622
  10. PREDNISOLONE [Suspect]
     Route: 065
     Dates: start: 20040623, end: 20040623
  11. PREDNISOLONE [Suspect]
     Route: 065
     Dates: start: 20040624, end: 20040624
  12. PREDNISOLONE [Suspect]
     Route: 065
     Dates: start: 20040625, end: 20040625
  13. PREDNISOLONE [Suspect]
     Route: 065
     Dates: start: 20040626, end: 20040626
  14. PREDNISOLONE [Suspect]
     Route: 065
     Dates: start: 20040627, end: 20040627
  15. PREDNISOLONE [Suspect]
     Route: 065
     Dates: start: 20040628
  16. IRON DEXTRAN [Suspect]
     Indication: THROMBOSIS PROPHYLAXIS
     Route: 065
     Dates: start: 20040623, end: 20040624
  17. DIPRIVAN [Concomitant]
     Indication: SEDATION
     Dates: start: 20040622, end: 20040622
  18. DOPAMINE HCL [Concomitant]
     Indication: BLOOD PRESSURE
     Dates: start: 20040622, end: 20040623
  19. INSULIN [Concomitant]
     Indication: HYPERGLYCAEMIA
     Dates: start: 20040622
  20. MORFIN [Concomitant]
     Indication: PAIN
     Dates: start: 20040622, end: 20040625
  21. FUROSEMIDE [Concomitant]
     Indication: OLIGURIA
     Dates: start: 20040623, end: 20040627
  22. NYSTATIN [Concomitant]
     Indication: ANTIFUNGAL PROPHYLAXIS
     Dates: start: 20040623
  23. ALBUMIN (HUMAN) [Concomitant]
  24. AMPICILLIN [Concomitant]
     Indication: INFECTION PROPHYLAXIS
     Dates: start: 20040622, end: 20040629
  25. CEFOTAXIM [Concomitant]
     Indication: INFECTION PROPHYLAXIS
     Dates: start: 20040622, end: 20040629
  26. OMEPRAZOLE [Concomitant]
     Dates: start: 20040622
  27. ACETAMINOPHEN [Concomitant]
     Indication: PAIN
     Dates: start: 20040624
  28. LIDOCAIN [Concomitant]
     Dates: start: 20040624, end: 20040624
  29. DIAZEPAM [Concomitant]
     Indication: ANXIETY
     Dates: start: 20040624, end: 20040624

REACTIONS (8)
  - ATELECTASIS [None]
  - CARDIOVASCULAR DISORDER [None]
  - GASTROINTESTINAL HAEMORRHAGE [None]
  - HEPATIC HAEMATOMA [None]
  - PLATELET COUNT DECREASED [None]
  - PLEURAL EFFUSION [None]
  - RESPIRATORY DISTRESS [None]
  - RESPIRATORY RATE DECREASED [None]
